FAERS Safety Report 8091200-0 (Version None)
Quarter: 2012Q1

REPORT INFORMATION
  Report Type: 
  Country: None (occurrence: None)
  Receive Date: 20120129
  Receipt Date: 20110929
  Transmission Date: 20120608
  Serious: No
  Sender: FDA-Public Use
  Company Number: US-ABBOTT-11P-163-0859709-00

PATIENT
  Sex: Male

DRUGS (6)
  1. METHOTREXATE [Concomitant]
     Indication: PSORIATIC ARTHROPATHY
  2. FOLIC ACID [Concomitant]
     Indication: SUPPLEMENTATION THERAPY
  3. HUMIRA [Suspect]
     Indication: PSORIATIC ARTHROPATHY
     Dates: start: 20110101, end: 20110901
  4. PREDNISONE TAB [Concomitant]
     Indication: PSORIATIC ARTHROPATHY
  5. LORTAB [Concomitant]
     Indication: PAIN
  6. LOZOL [Concomitant]
     Indication: PRODUCT USED FOR UNKNOWN INDICATION

REACTIONS (2)
  - URTICARIA [None]
  - HYPERSENSITIVITY [None]
